FAERS Safety Report 9230239 (Version 2)
Quarter: 2013Q2

REPORT INFORMATION
  Report Type: Spontaneous
  Country: IT (occurrence: None)
  Receive Date: 20130411
  Receipt Date: 20130411
  Transmission Date: 20140414
  Serious: Yes (Hospitalization)
  Sender: FDA-Public Use
  Company Number: 2013AP004236

PATIENT
  Age: 47 Year
  Sex: Female

DRUGS (8)
  1. ALPRAZOLAM [Suspect]
     Route: 048
     Dates: start: 20120912, end: 20120912
  2. ZOLPIDEM TARTRATE (ZOLPIDEM TARTRATE) [Suspect]
     Route: 048
     Dates: start: 20120912, end: 20120912
  3. LITHIUM CARBONATE (LITHIUM CARBONATE) [Concomitant]
  4. PREGABALIN (PREGABALIN) [Concomitant]
  5. VALPROATE SODIUM (VALPROATE SODIUM) [Concomitant]
  6. VENLAFAXINE (VENLAFAXINE) [Concomitant]
  7. CLOZAPINE (CLOZAPINE) [Concomitant]
  8. LEVOTHYROXINE 9LEVOTHYROXINE) [Concomitant]

REACTIONS (2)
  - Sopor [None]
  - Toxicity to various agents [None]
